FAERS Safety Report 9648805 (Version 3)
Quarter: 2014Q1

REPORT INFORMATION
  Report Type: Spontaneous
  Country: US (occurrence: US)
  Receive Date: 20131028
  Receipt Date: 20140116
  Transmission Date: 20141002
  Serious: Yes (Death, Hospitalization, Other)
  Sender: FDA-Public Use
  Company Number: US-GILEAD-2013-0086227

PATIENT
  Sex: Female

DRUGS (2)
  1. LETAIRIS [Suspect]
     Indication: PULMONARY ARTERIAL HYPERTENSION
     Dosage: 10 MG, UNK
     Route: 048
     Dates: start: 20120306, end: 20131016
  2. LETAIRIS [Suspect]
     Indication: NEUROFIBROMATOSIS

REACTIONS (3)
  - Myocardial infarction [Fatal]
  - Oxygen saturation abnormal [Unknown]
  - Dyspnoea [Unknown]
